FAERS Safety Report 6113710-5 (Version None)
Quarter: 2009Q1

REPORT INFORMATION
  Report Type: 
  Country: None (occurrence: None)
  Receive Date: 20090312
  Receipt Date: 20090305
  Transmission Date: 20090719
  Serious: Yes (Hospitalization, Other)
  Sender: FDA-Public Use
  Company Number: US-ELI_LILLY_AND_COMPANY-US200903001302

PATIENT
  Sex: Female

DRUGS (1)
  1. FORTEO [Suspect]
     Dosage: UNK, UNK
     Dates: start: 20080601

REACTIONS (5)
  - ACCIDENTAL OVERDOSE [None]
  - BACK PAIN [None]
  - INJECTION SITE IRRITATION [None]
  - MEDICATION ERROR [None]
  - SCOLIOSIS [None]
